FAERS Safety Report 4400907-5 (Version None)
Quarter: 2004Q3

REPORT INFORMATION
  Report Type: 
  Country: None (occurrence: None)
  Receive Date: 20040907
  Receipt Date: 20030804
  Transmission Date: 20050211
  Serious: No
  Sender: FDA-Public Use
  Company Number: US-BRISTOL-MYERS SQUIBB COMPANY-12345302

PATIENT
  Sex: Female

DRUGS (1)
  1. COUMADIN [Suspect]
     Dosage: DOSAGE: 7MG FOR TWO DAYS WEEKLY AND 6MG DAILY FOR FIVE DAYS WEEKLY
     Route: 048

REACTIONS (1)
  - SWOLLEN TONGUE [None]
